FAERS Safety Report 9066568 (Version 1)
Quarter: 2013Q1

REPORT INFORMATION
  Report Type: Spontaneous
  Country: BE (occurrence: BE)
  Receive Date: 20130214
  Receipt Date: 20130214
  Transmission Date: 20140127
  Serious: Yes (Other)
  Sender: FDA-Public Use
  Company Number: BE-TEVA-385574ISR

PATIENT
  Age: 24 Year
  Sex: Female

DRUGS (6)
  1. BLEOMYCIN [Suspect]
     Indication: NON-HODGKIN^S LYMPHOMA
     Route: 065
  2. DOXORUBICIN [Concomitant]
     Indication: NON-HODGKIN^S LYMPHOMA
     Route: 065
  3. CYCLOPHOSPHAMIDE [Concomitant]
     Indication: NON-HODGKIN^S LYMPHOMA
     Route: 065
  4. VINDESINE [Concomitant]
     Indication: NON-HODGKIN^S LYMPHOMA
     Route: 065
  5. METHYLPREDNISOLONE [Concomitant]
     Indication: NON-HODGKIN^S LYMPHOMA
     Route: 065
  6. METHOTREXATE [Concomitant]
     Indication: NON-HODGKIN^S LYMPHOMA
     Route: 065

REACTIONS (2)
  - Pneumomediastinum [Recovering/Resolving]
  - Interstitial lung disease [Recovering/Resolving]
